FAERS Safety Report 22614508 (Version 6)
Quarter: 2023Q4

REPORT INFORMATION
  Report Type: Other
  Country: AT (occurrence: None)
  Receive Date: 20230619
  Receipt Date: 20231204
  Transmission Date: 20240110
  Serious: Yes (Hospitalization)
  Sender: FDA-Public Use
  Company Number: AT-ROCHE-3369554

PATIENT
  Age: 63 Year
  Sex: Female
  Weight: 65 kg

DRUGS (64)
  1. HERCEPTIN [Suspect]
     Active Substance: TRASTUZUMAB
     Indication: HER2 positive breast cancer
     Dosage: MOST RECENT DOSE PRIOR TO THE EVENT: 17/JUL/2018. 4/NOV/2022
     Route: 042
     Dates: start: 20180627, end: 20180627
  2. PERJETA [Suspect]
     Active Substance: PERTUZUMAB
     Indication: HER2 positive breast cancer
     Dosage: MOST RECENT DOSE PRIOR TO THE EVENT: 17/JUL/2018, 2/DEC/2020
     Route: 042
     Dates: start: 20180627, end: 20180627
  3. XGEVA [Suspect]
     Active Substance: DENOSUMAB
     Indication: HER2 positive breast cancer
     Route: 058
     Dates: start: 20180628, end: 20230504
  4. TAXOTERE [Suspect]
     Active Substance: DOCETAXEL
     Indication: HER2 positive breast cancer
     Route: 042
     Dates: start: 20180627, end: 20181105
  5. AROMASIN [Suspect]
     Active Substance: EXEMESTANE
     Indication: HER2 positive breast cancer
     Dosage: O.D. - ONCE DAILY
     Route: 048
     Dates: start: 20230421
  6. FEMARA [Suspect]
     Active Substance: LETROZOLE
     Indication: HER2 positive breast cancer
     Route: 048
     Dates: start: 20181130, end: 202211
  7. DIPHENHYDRAMINE HYDROCHLORIDE [Concomitant]
     Active Substance: DIPHENHYDRAMINE HYDROCHLORIDE
     Dosage: ONGOING = CHECKED
     Dates: start: 20180626
  8. DEXAMETHASONE [Concomitant]
     Active Substance: DEXAMETHASONE
     Dosage: ONGOING = CHECKED
     Dates: start: 20180626
  9. ZOFRAN [Concomitant]
     Active Substance: ONDANSETRON HYDROCHLORIDE
     Dosage: ONGOING = CHECKED
     Dates: start: 20180626
  10. ZOFRAN [Concomitant]
     Active Substance: ONDANSETRON HYDROCHLORIDE
     Dosage: ONGOING = CHECKED
     Dates: start: 20230528, end: 20230528
  11. XGEVA [Concomitant]
     Active Substance: DENOSUMAB
     Dosage: ONGOING = NOT CHECKED
     Dates: start: 20180628, end: 20230504
  12. NEXIUM [Concomitant]
     Active Substance: ESOMEPRAZOLE MAGNESIUM
     Dosage: ONGOING = CHECKED
     Dates: start: 20180719
  13. VOLTAREN [Concomitant]
     Active Substance: DICLOFENAC SODIUM
     Dosage: ONGOING = CHECKED
     Dates: start: 20180816
  14. CLINDAMYCIN [Concomitant]
     Active Substance: CLINDAMYCIN
     Dosage: ONGOING = CHECKED
     Dates: start: 20190205
  15. ASCORBIC ACID\CALCIUM PHOSPHATE\CHOLECALCIFEROL\CITRIC ACID MONOHYDRAT [Concomitant]
     Active Substance: ASCORBIC ACID\CALCIUM PHOSPHATE\CHOLECALCIFEROL\CITRIC ACID MONOHYDRATE
     Indication: Ileus paralytic
     Dosage: ONGOING = CHECKED
     Dates: start: 20190409
  16. DAFLON [Concomitant]
     Dosage: ONGOING = CHECKED
     Dates: start: 20190509
  17. BISOPROLOL FUMARATE [Concomitant]
     Active Substance: BISOPROLOL FUMARATE
     Dosage: ONGOING = CHECKED
     Dates: start: 20200817
  18. NOREPINEPHRINE HYDROCHLORIDE, (+/-)- [Concomitant]
     Active Substance: NOREPINEPHRINE HYDROCHLORIDE, (+/-)-
     Indication: Ileus paralytic
     Dosage: ONGOING = NOT CHECKED
     Dates: start: 20230505, end: 20230525
  19. BERODUALIN [Concomitant]
     Indication: Pneumonia
     Dosage: ONGOING = NOT CHECKED
     Dates: start: 20230505, end: 20230531
  20. NEOSTIGMINE [Concomitant]
     Active Substance: NEOSTIGMINE
     Indication: Ileus paralytic
     Dosage: ONGOING = NOT CHECKED
     Dates: start: 20230505, end: 20230519
  21. SMOFKABIVEN PERI [Concomitant]
     Indication: Ileus paralytic
     Dosage: ONGOING = NOT CHECKED
     Dates: start: 20230507, end: 20230524
  22. ERYTHROMYCIN [Concomitant]
     Active Substance: ERYTHROMYCIN
     Indication: Ileus paralytic
     Dosage: ONGOING = NOT CHECKED
     Dates: start: 20230509, end: 20230512
  23. PASPERTIN [Concomitant]
     Indication: Ileus paralytic
     Dosage: ONGOING = NOT CHECKED
     Dates: start: 20230511, end: 20230525
  24. FENTANYL [Concomitant]
     Active Substance: FENTANYL\FENTANYL CITRATE
     Indication: Ileus paralytic
     Dosage: ONGOING = NOT CHECKED
     Dates: start: 20230512, end: 20230512
  25. KETANEST [Concomitant]
     Indication: Ileus paralytic
     Dosage: ONGOING = NOT CHECKED
     Dates: start: 20230512, end: 20230512
  26. CLONIDINE [Concomitant]
     Active Substance: CLONIDINE
     Indication: Ileus paralytic
     Dosage: ONGOING = NOT CHECKED
     Dates: start: 20230513, end: 20230523
  27. SERTRALINE HYDROCHLORIDE [Concomitant]
     Active Substance: SERTRALINE HYDROCHLORIDE
     Indication: Ileus paralytic
     Dosage: ONGOING = CHECKED
     Dates: start: 20230513
  28. BRICANYL [Concomitant]
     Active Substance: TERBUTALINE SULFATE
     Indication: Ileus paralytic
     Dosage: ONGOING = NOT CHECKED
     Dates: start: 20230514, end: 20230518
  29. GASTROMIRO [Concomitant]
     Indication: Ileus paralytic
     Dosage: ONGOING = NOT CHECKED
     Dates: start: 20230514, end: 20230517
  30. POLYETHYLENE GLYCOL 3350\POTASSIUM CHLORIDE\SODIUM BICARBONATE\SODIUM [Concomitant]
     Active Substance: POLYETHYLENE GLYCOL 3350\POTASSIUM CHLORIDE\SODIUM BICARBONATE\SODIUM CHLORIDE
     Indication: Ileus paralytic
     Dosage: ONGOING = NOT CHECKED
     Dates: start: 20230514, end: 20230525
  31. PULMICORT TURBUHALER [Concomitant]
     Active Substance: BUDESONIDE
     Indication: Ileus paralytic
     Dosage: ONGOING = NOT CHECKED
     Dates: start: 20230514, end: 20230518
  32. GENTAMICIN SULFATE [Concomitant]
     Active Substance: GENTAMICIN SULFATE
     Indication: Ileus paralytic
     Dosage: ONGOING = NOT CHECKED
     Dates: start: 20230515, end: 20230525
  33. DORMICUM [Concomitant]
     Indication: Ileus paralytic
     Dosage: ONGOING = NOT CHECKED
     Dates: start: 20230516, end: 20230518
  34. NALOXEGOL OXALATE [Concomitant]
     Active Substance: NALOXEGOL OXALATE
     Indication: Ileus paralytic
     Dosage: ONGOING = NOT CHECKED
     Dates: start: 20230516, end: 20230525
  35. SUFENTANIL [Concomitant]
     Active Substance: SUFENTANIL
     Indication: Ileus paralytic
     Dosage: ONGOING = NOT CHECKED
     Dates: start: 20230516, end: 20230518
  36. LASIX [Concomitant]
     Active Substance: FUROSEMIDE
     Indication: Sepsis
     Dosage: ONGOING = NOT CHECKED
     Dates: start: 20230518, end: 20230530
  37. CEFEPIME HYDROCHLORIDE [Concomitant]
     Active Substance: CEFEPIME HYDROCHLORIDE
     Indication: Sepsis
     Dosage: ONGOING = NOT CHECKED
     Dates: start: 20230519, end: 20230529
  38. HYPOTRIT [Concomitant]
     Indication: Sepsis
     Dosage: ONGOING = NOT CHECKED
     Dates: start: 20230521, end: 20230531
  39. FLUCONAZOLE [Concomitant]
     Active Substance: FLUCONAZOLE
     Indication: Sepsis
     Dosage: ONGOING = NOT CHECKED
     Dates: start: 20230522, end: 20230530
  40. POTASSIUM CHLORIDE [Concomitant]
     Active Substance: POTASSIUM CHLORIDE
     Indication: Ileus paralytic
     Dosage: ONGOING = NOT CHECKED
     Dates: start: 20230522, end: 20230525
  41. PERFALGAN [Concomitant]
     Active Substance: ACETAMINOPHEN
     Indication: Sepsis
     Dosage: ONGOING = NOT CHECKED
     Dates: start: 20230522, end: 20230530
  42. MORPHINE [Concomitant]
     Active Substance: MORPHINE
     Indication: Ileus paralytic
     Dosage: ONGOING = NOT CHECKED
     Dates: start: 20230522, end: 20230525
  43. CLONIDINE [Concomitant]
     Active Substance: CLONIDINE
     Indication: Ileus paralytic
     Dosage: ONGOING = NOT CHECKED
     Dates: start: 20230523, end: 20230523
  44. KALIORAL (AUSTRIA) [Concomitant]
     Indication: Ileus paralytic
     Dosage: ONGOING = NOT CHECKED
     Dates: start: 20230523, end: 20230524
  45. NEPRESOL [Concomitant]
     Indication: Ileus paralytic
     Dosage: ONGOING = NOT CHECKED
     Dates: start: 20230523, end: 20230523
  46. NOVALGIN (AUSTRIA) [Concomitant]
     Indication: Sepsis
     Dosage: ONGOING = NOT CHECKED
     Dates: start: 20230523, end: 20230529
  47. ACEMIN (AUSTRIA) [Concomitant]
     Indication: Sepsis
     Dosage: ONGOING = NOT CHECKED
     Dates: start: 20230525, end: 20230601
  48. ELOZELL FORTE [Concomitant]
     Indication: Sepsis
     Dosage: ONGOING = NOT CHECKED
     Dates: start: 20230525, end: 20230531
  49. FUROSEMIDE\SPIRONOLACTONE [Concomitant]
     Active Substance: FUROSEMIDE\SPIRONOLACTONE
     Indication: Sepsis
     Dosage: ONGOING = NOT CHECKED
     Dates: start: 20230525, end: 20230601
  50. XIPAMIDE [Concomitant]
     Active Substance: XIPAMIDE
     Indication: Ileus paralytic
     Dosage: ONGOING = NOT CHECKED
     Dates: start: 20230526, end: 20230601
  51. SEROQUEL [Concomitant]
     Active Substance: QUETIAPINE FUMARATE
     Indication: Sepsis
     Dosage: ONGOING = NOT CHECKED
     Dates: start: 20230526, end: 20230601
  52. MELPERONE HYDROCHLORIDE [Concomitant]
     Active Substance: MELPERONE HYDROCHLORIDE
     Indication: Ileus paralytic
     Dosage: ONGOING = NOT CHECKED
     Dates: start: 20230527, end: 20230601
  53. MELPERONE HYDROCHLORIDE [Concomitant]
     Active Substance: MELPERONE HYDROCHLORIDE
     Indication: Ileus paralytic
     Dosage: ONGOING = CHECKED
     Dates: start: 20230602
  54. INDERAL [Concomitant]
     Active Substance: PROPRANOLOL HYDROCHLORIDE
     Indication: Sepsis
     Dosage: ONGOING = NOT CHECKED
     Dates: start: 20230527, end: 20230601
  55. MAGNESIUM CARBONATE\MAGNESIUM OXIDE [Concomitant]
     Active Substance: MAGNESIUM CARBONATE\MAGNESIUM OXIDE
     Indication: Sepsis
     Dosage: ONGOING = NOT CHECKED
     Dates: start: 20230527, end: 20230601
  56. MELATONIN [Concomitant]
     Active Substance: MELATONIN
     Indication: Ileus paralytic
     Dosage: ONGOING = NOT CHECKED
     Dates: start: 20230527, end: 20230601
  57. METASOL [Concomitant]
     Active Substance: BENZOPHENONE\HYDROQUINONE
     Indication: Ileus paralytic
     Dosage: ONGOING = NOT CHECKED
     Dates: start: 20230527, end: 20230527
  58. PROPOFOL [Concomitant]
     Active Substance: PROPOFOL
     Indication: Ileus paralytic
     Dosage: ONGOING = NOT CHECKED
     Dates: start: 20230527, end: 20230527
  59. NICOTINELL [Concomitant]
     Active Substance: NICOTINE
     Indication: Sepsis
     Dosage: ONGOING = NOT CHECKED
     Dates: start: 20230528, end: 20230601
  60. TEMESTA [Concomitant]
     Indication: Sepsis
     Dosage: ONGOING = NOT CHECKED
     Dates: start: 20230528, end: 20230528
  61. TRAZODONE HYDROCHLORIDE [Concomitant]
     Active Substance: TRAZODONE HYDROCHLORIDE
     Indication: Sepsis
     Dosage: ONGOING = NOT CHECKED
     Dates: start: 20230528, end: 20230601
  62. OXAZEPAM [Concomitant]
     Active Substance: OXAZEPAM
     Indication: Sepsis
     Dosage: ONGOING = NOT CHECKED
     Dates: start: 20230529, end: 20230530
  63. ESOMEPRAZOLE [Concomitant]
     Active Substance: ESOMEPRAZOLE
     Indication: Ileus paralytic
     Dosage: ONGOING = CHECKED
     Dates: start: 20230601
  64. ETILEFRINE HYDROCHLORIDE [Concomitant]
     Active Substance: ETILEFRINE HYDROCHLORIDE
     Indication: Sepsis
     Dosage: ONGOING = NOT CHECKED
     Dates: start: 20230601, end: 20230601

REACTIONS (4)
  - Volvulus [Recovered/Resolved]
  - Sepsis [Recovered/Resolved]
  - Ileus paralytic [Recovered/Resolved]
  - Pneumonia [Recovered/Resolved]

NARRATIVE: CASE EVENT DATE: 20230502
